FAERS Safety Report 6075992-8 (Version None)
Quarter: 2009Q1

REPORT INFORMATION
  Report Type: 
  Country: None (occurrence: None)
  Receive Date: 20090212
  Receipt Date: 20090130
  Transmission Date: 20090719
  Serious: Yes (Other)
  Sender: FDA-Public Use
  Company Number: SEWYE620204MAR04

PATIENT
  Sex: Male
  Weight: 84 kg

DRUGS (1)
  1. REFACTO [Suspect]
     Indication: FACTOR VIII DEFICIENCY
     Route: 042
     Dates: start: 19991019

REACTIONS (1)
  - ANTI FACTOR VIII ANTIBODY POSITIVE [None]
